FAERS Safety Report 5204689-9 (Version None)
Quarter: 2007Q1

REPORT INFORMATION
  Report Type: 
  Country: None (occurrence: None)
  Receive Date: 20070110
  Receipt Date: 20060828
  Transmission Date: 20070707
  Serious: No
  Sender: FDA-Public Use
  Company Number: US-BRISTOL-MYERS SQUIBB COMPANY-13413950

PATIENT
  Age: 39 Year
  Sex: Female

DRUGS (7)
  1. ABILIFY [Suspect]
     Indication: MAJOR DEPRESSION
     Route: 048
  2. ABILIFY [Suspect]
     Indication: PSYCHOTIC DISORDER
     Route: 048
  3. ABILIFY [Suspect]
     Indication: BIPOLAR DISORDER
     Route: 048
  4. CYMBALTA [Suspect]
     Dosage: DOSE DECR FROM 120MG TO 60MG
  5. SEROQUEL [Concomitant]
  6. LAMICTAL [Concomitant]
  7. LEVOXYL [Concomitant]

REACTIONS (1)
  - GALACTORRHOEA [None]
